FAERS Safety Report 9504900 (Version 3)
Quarter: 2015Q4

REPORT INFORMATION
  Report Type: Report from Study
  Country: JP (occurrence: JP)
  Receive Date: 20130906
  Receipt Date: 20151022
  Transmission Date: 20160305
  Serious: Yes (Death, Hospitalization, Other)
  Sender: FDA-Public Use
  Company Number: JP-GILEAD-2013-0082823

PATIENT
  Age: 69 Year
  Sex: Female
  Weight: 41 kg

DRUGS (34)
  1. REVATIO [Suspect]
     Active Substance: SILDENAFIL CITRATE
     Indication: PULMONARY ARTERIAL HYPERTENSION
     Dosage: UNK
     Route: 048
     Dates: start: 20080418, end: 20121004
  2. MAINTATE [Concomitant]
     Active Substance: BISOPROLOL FUMARATE
     Dosage: UNK
     Dates: start: 20120209, end: 20121004
  3. LAC-B GRANULAR POWDER N [Concomitant]
     Dosage: UNK
     Dates: end: 20120207
  4. MIYA-BM [Concomitant]
     Active Substance: CLOSTRIDIUM BUTYRICUM SPORES STRAIN M-55
     Dosage: UNK
     Dates: start: 20120208, end: 20121004
  5. GLIVEC [Suspect]
     Active Substance: IMATINIB MESYLATE
     Indication: PULMONARY ARTERIAL HYPERTENSION
     Dosage: UNK
     Route: 048
     Dates: start: 20110806, end: 20110901
  6. FLOLAN [Suspect]
     Active Substance: EPOPROSTENOL SODIUM
     Indication: PULMONARY ARTERIAL HYPERTENSION
     Dosage: 24 UNK, UNK
     Route: 042
     Dates: start: 20091109
  7. HERBESSER [Concomitant]
     Active Substance: DILTIAZEM HYDROCHLORIDE
     Dosage: UNK
     Route: 048
     Dates: start: 20100202, end: 20121004
  8. LIVALO [Concomitant]
     Active Substance: PITAVASTATIN CALCIUM
     Route: 048
  9. ZYLORIC [Concomitant]
     Active Substance: ALLOPURINOL
     Route: 048
  10. ZYLORIC [Concomitant]
     Active Substance: ALLOPURINOL
     Dosage: UNK
     Route: 048
     Dates: end: 20121004
  11. PARIET [Concomitant]
     Active Substance: RABEPRAZOLE SODIUM
     Route: 048
  12. AMBRISENTAN [Suspect]
     Active Substance: AMBRISENTAN
     Indication: PULMONARY ARTERIAL HYPERTENSION
     Dosage: 10 MG, QD
     Route: 048
     Dates: start: 20101008
  13. ADCIRCA [Suspect]
     Active Substance: TADALAFIL
     Indication: PULMONARY ARTERIAL HYPERTENSION
     Dosage: UNK
     Route: 048
     Dates: start: 20120113, end: 20121004
  14. ZYLORIC [Concomitant]
     Active Substance: ALLOPURINOL
     Route: 048
  15. FLOLAN [Suspect]
     Active Substance: EPOPROSTENOL SODIUM
     Dosage: UNK
     Route: 042
     Dates: end: 20121004
  16. ALDACTONE A [Concomitant]
     Active Substance: SPIRONOLACTONE
     Indication: CARDIAC FAILURE
     Route: 048
  17. ALDACTONE A [Concomitant]
     Active Substance: SPIRONOLACTONE
     Dosage: UNK
     Route: 048
     Dates: end: 20121004
  18. PARIET [Concomitant]
     Active Substance: RABEPRAZOLE SODIUM
     Dosage: UNK
     Route: 048
     Dates: end: 20121004
  19. FUROSEMIDE. [Concomitant]
     Active Substance: FUROSEMIDE
     Route: 048
  20. ARTIST [Concomitant]
     Active Substance: CARVEDILOL
     Dosage: UNK
     Dates: end: 20120208
  21. HERBESSER [Concomitant]
     Active Substance: DILTIAZEM HYDROCHLORIDE
     Indication: PULMONARY ARTERIAL HYPERTENSION
     Route: 048
     Dates: start: 20100202
  22. FERROMIA [Concomitant]
     Active Substance: FERROUS CITRATE
     Dosage: UNK
     Dates: end: 20121004
  23. LOPEMIN                            /00384302/ [Concomitant]
     Active Substance: LOPERAMIDE HYDROCHLORIDE
     Dosage: UNK
     Dates: end: 20121004
  24. CODEINE PHOSPHATE [Concomitant]
     Active Substance: CODEINE PHOSPHATE
     Dosage: UNK
     Dates: start: 20120416, end: 20120603
  25. AMBRISENTAN [Suspect]
     Active Substance: AMBRISENTAN
     Dosage: 5 MG, QD
     Route: 048
     Dates: start: 20101002, end: 20101007
  26. FUROSEMIDE. [Concomitant]
     Active Substance: FUROSEMIDE
     Indication: CARDIAC FAILURE
     Route: 048
  27. ALDACTONE A [Concomitant]
     Active Substance: SPIRONOLACTONE
     Route: 048
  28. LIVALO [Concomitant]
     Active Substance: PITAVASTATIN CALCIUM
     Route: 048
  29. PARIET [Concomitant]
     Active Substance: RABEPRAZOLE SODIUM
     Route: 048
  30. PANALDINE [Suspect]
     Active Substance: TICLOPIDINE HYDROCHLORIDE
     Indication: PROPHYLAXIS
     Dosage: UNK
     Route: 048
     Dates: end: 20110221
  31. FUROSEMIDE. [Concomitant]
     Active Substance: FUROSEMIDE
     Dosage: UNK
     Route: 048
     Dates: end: 20121004
  32. LIVALO [Concomitant]
     Active Substance: PITAVASTATIN CALCIUM
     Dosage: UNK
     Route: 048
     Dates: end: 20121004
  33. ASPENON [Concomitant]
     Active Substance: APRINDINE HYDROCHLORIDE
     Dosage: UNK
     Dates: start: 20120204, end: 20121004
  34. FLUITRAN [Concomitant]
     Active Substance: TRICHLORMETHIAZIDE
     Dosage: UNK
     Dates: start: 20120216, end: 20121004

REACTIONS (12)
  - Oedema peripheral [Recovering/Resolving]
  - Cardiac failure [Recovering/Resolving]
  - Hepatic function abnormal [Recovered/Resolved]
  - Oedema peripheral [Not Recovered/Not Resolved]
  - Death [Fatal]
  - Cardiac failure [Recovering/Resolving]
  - Anaemia [Recovered/Resolved]
  - Femur fracture [Recovered/Resolved with Sequelae]
  - Anaemia [Not Recovered/Not Resolved]
  - Otitis media [Recovering/Resolving]
  - Small intestinal haemorrhage [Recovering/Resolving]
  - Hepatic enzyme increased [Not Recovered/Not Resolved]

NARRATIVE: CASE EVENT DATE: 20101118
